FAERS Safety Report 12497012 (Version 2)
Quarter: 2016Q3

REPORT INFORMATION
  Report Type: Spontaneous
  Country: US (occurrence: US)
  Receive Date: 20160624
  Receipt Date: 20160705
  Transmission Date: 20161109
  Serious: Yes (Other)
  Sender: FDA-Public Use
  Company Number: US-TEVA-669092USA

PATIENT
  Age: 26 Year
  Sex: Female

DRUGS (1)
  1. ZECUITY [Suspect]
     Active Substance: SUMATRIPTAN SUCCINATE
     Dosage: 6.5 MG OVER 4 HOURS
     Route: 062
     Dates: start: 201605, end: 201605

REACTIONS (7)
  - Product leakage [Unknown]
  - Application site burn [Recovered/Resolved]
  - Hyperkeratosis [Recovered/Resolved]
  - Application site discolouration [Unknown]
  - Application site paraesthesia [Recovered/Resolved]
  - Dry skin [Recovered/Resolved]
  - Sticky skin [Recovered/Resolved]

NARRATIVE: CASE EVENT DATE: 201605
